FAERS Safety Report 10340692 (Version 3)
Quarter: 2015Q1

REPORT INFORMATION
  Report Type: Report from Study
  Country: JP (occurrence: JP)
  Receive Date: 20140724
  Receipt Date: 20150123
  Transmission Date: 20150720
  Serious: Yes (Death, Other)
  Sender: FDA-Public Use
  Company Number: PHHY2012JP132880

PATIENT
  Age: 79 Year
  Sex: Female

DRUGS (2)
  1. AFINITOR [Suspect]
     Active Substance: EVEROLIMUS
     Indication: RENAL CELL CARCINOMA
     Dosage: 10 MG, QD
     Route: 048
     Dates: start: 20111114
  2. AFINITOR [Suspect]
     Active Substance: EVEROLIMUS
     Indication: RENAL TUMOUR EXCISION
     Dosage: 5 MG, QD
     Route: 048
     Dates: end: 201209

REACTIONS (9)
  - Metastases to bone [Unknown]
  - Metastases to lung [Unknown]
  - Hypertriglyceridaemia [Unknown]
  - Decreased appetite [Recovered/Resolved]
  - Death [Fatal]
  - Anaemia [Recovered/Resolved]
  - Mucosal inflammation [Recovered/Resolved]
  - Platelet count decreased [Unknown]
  - Hyperglycaemia [Recovered/Resolved]

NARRATIVE: CASE EVENT DATE: 201203
